FAERS Safety Report 19755084 (Version 1)
Quarter: 2021Q3

REPORT INFORMATION
  Report Type: Spontaneous
  Country: US (occurrence: US)
  Receive Date: 20210825
  Receipt Date: 20210825
  Transmission Date: 20211014
  Serious: No
  Sender: FDA-Public Use
  Company Number: None

PATIENT
  Age: 49 Year
  Sex: Female

DRUGS (1)
  1. AMBRISENTAN TAB 10MG [Suspect]
     Active Substance: AMBRISENTAN
     Route: 048
     Dates: start: 201903

REACTIONS (5)
  - Condition aggravated [None]
  - Cardiomegaly [None]
  - Pulmonary arterial hypertension [None]
  - Dyspnoea [None]
  - Product use issue [None]

NARRATIVE: CASE EVENT DATE: 20210712
